FAERS Safety Report 21487273 (Version 4)
Quarter: 2023Q1

REPORT INFORMATION
  Report Type: Spontaneous
  Country: US (occurrence: None)
  Receive Date: 20221020
  Receipt Date: 20230123
  Transmission Date: 20230417
  Serious: No
  Sender: FDA-Public Use
  Company Number: US-ROCHE-3203229

PATIENT
  Age: 74 Year
  Sex: Male
  Weight: 118.6 kg

DRUGS (42)
  1. POLIVY [Suspect]
     Active Substance: POLATUZUMAB VEDOTIN-PIIQ
     Indication: Diffuse large B-cell lymphoma
     Route: 042
     Dates: start: 20200604, end: 20200707
  2. POLIVY [Suspect]
     Active Substance: POLATUZUMAB VEDOTIN-PIIQ
     Indication: Cutaneous T-cell lymphoma
  3. ACETAMINOPHEN [Concomitant]
     Active Substance: ACETAMINOPHEN
  4. ZOVIRAX [Concomitant]
     Active Substance: ACYCLOVIR
  5. DIPHENHYDRAMINE HYDROCHLORIDE\LIDOCAINE HYDROCHLORIDE\NYSTATIN [Concomitant]
     Active Substance: DIPHENHYDRAMINE HYDROCHLORIDE\LIDOCAINE HYDROCHLORIDE\NYSTATIN
  6. ALBUTEROL [Concomitant]
     Active Substance: ALBUTEROL
  7. ZYLOPRIM [Concomitant]
     Active Substance: ALLOPURINOL
  8. NORVASC [Concomitant]
     Active Substance: AMLODIPINE BESYLATE
  9. ELIQUIS [Concomitant]
     Active Substance: APIXABAN
  10. LIPITOR [Concomitant]
     Active Substance: ATORVASTATIN CALCIUM
  11. BUMEX [Concomitant]
     Active Substance: BUMETANIDE
  12. COREG [Concomitant]
     Active Substance: CARVEDILOL
  13. CYANOCOBALAMIN [Concomitant]
     Active Substance: CYANOCOBALAMIN
  14. DECADRON [Concomitant]
     Active Substance: DEXAMETHASONE
  15. BENADRYL [Concomitant]
     Active Substance: DIPHENHYDRAMINE HYDROCHLORIDE
  16. NEXIUM [Concomitant]
     Active Substance: ESOMEPRAZOLE MAGNESIUM
  17. DIFLUCAN [Concomitant]
     Active Substance: FLUCONAZOLE
  18. FLONASE [Concomitant]
     Active Substance: FLUTICASONE PROPIONATE
  19. LASIX [Concomitant]
     Active Substance: FUROSEMIDE
  20. NEURONTIN [Concomitant]
     Active Substance: GABAPENTIN
  21. PROCTOSOL HC [Concomitant]
  22. LIDODERM [Concomitant]
     Active Substance: LIDOCAINE
  23. XYLOCAINE [Concomitant]
     Active Substance: LIDOCAINE HYDROCHLORIDE
  24. ATIVAN [Concomitant]
     Active Substance: LORAZEPAM
  25. COZAAR [Concomitant]
     Active Substance: LOSARTAN POTASSIUM
  26. MAGNESIUM [Concomitant]
     Active Substance: MAGNESIUM
  27. ROBAXIN [Concomitant]
     Active Substance: METHOCARBAMOL
  28. SINGULAIR [Concomitant]
     Active Substance: MONTELUKAST SODIUM
  29. MULTIVITAL [Concomitant]
  30. ZOFRAN [Concomitant]
     Active Substance: ONDANSETRON HYDROCHLORIDE
  31. ROXICODONE [Concomitant]
     Active Substance: OXYCODONE HYDROCHLORIDE
  32. K-DUR [Concomitant]
     Active Substance: POTASSIUM CHLORIDE
  33. KLOR-CON [Concomitant]
     Active Substance: POTASSIUM CHLORIDE
  34. PREPARATION H [HYDROCORTISONE] [Concomitant]
  35. COMPAZINE [Concomitant]
     Active Substance: PROCHLORPERAZINE MALEATE
  36. SUDAFED [Concomitant]
     Active Substance: PSEUDOEPHEDRINE HYDROCHLORIDE
  37. PULMICORT FLEXHALER [Concomitant]
     Active Substance: BUDESONIDE
  38. PERI-COLACE [Concomitant]
     Active Substance: CASANTHRANOL\DOCUSATE SODIUM
  39. BACTRIM [Concomitant]
     Active Substance: SULFAMETHOXAZOLE\TRIMETHOPRIM
  40. MORNIFLUMATE [Concomitant]
     Active Substance: MORNIFLUMATE
  41. ULTRAM [Concomitant]
     Active Substance: TRAMADOL HYDROCHLORIDE
  42. ASCORBIC ACID [Concomitant]
     Active Substance: ASCORBIC ACID

REACTIONS (2)
  - Off label use [Unknown]
  - No adverse event [Unknown]
